FAERS Safety Report 16152188 (Version 1)
Quarter: 2019Q2

REPORT INFORMATION
  Report Type: Report from Study
  Country: None (occurrence: GT)
  Receive Date: 20190403
  Receipt Date: 20190403
  Transmission Date: 20190711
  Serious: Yes (Hospitalization)
  Sender: FDA-Public Use
  Company Number: GT-ABBVIE-19S-069-2725574-00

PATIENT
  Age: 28 Year
  Sex: Male
  Weight: 65.5 kg

DRUGS (5)
  1. ZEMPLAR [Suspect]
     Active Substance: PARICALCITOL
     Indication: HYPERPARATHYROIDISM SECONDARY
     Route: 042
     Dates: start: 20160701
  2. APROVEL [Concomitant]
     Active Substance: IRBESARTAN
     Indication: HYPERTENSION
     Route: 065
     Dates: start: 2012
  3. CALCIUM [Concomitant]
     Active Substance: CALCIUM
     Indication: BONE DISORDER
     Route: 048
     Dates: start: 2012
  4. ERYTHROPOIETIN [Concomitant]
     Active Substance: ERYTHROPOIETIN
     Indication: HAEMOGLOBIN DECREASED
     Dosage: AMPOULE
     Route: 065
     Dates: start: 2012
  5. PLENDIL [Concomitant]
     Active Substance: FELODIPINE
     Indication: HYPERTENSION
     Route: 065
     Dates: start: 2012

REACTIONS (1)
  - Device related infection [Recovered/Resolved]

NARRATIVE: CASE EVENT DATE: 20190320
